FAERS Safety Report 7109122-8 (Version None)
Quarter: 2010Q4

REPORT INFORMATION
  Report Type: 
  Country: None (occurrence: None)
  Receive Date: 20101117
  Receipt Date: 20101112
  Transmission Date: 20110411
  Serious: Yes (Hospitalization)
  Sender: FDA-Public Use
  Company Number: GB-PFIZER INC-2010126547

PATIENT
  Age: 55 Year
  Sex: Male
  Weight: 85 kg

DRUGS (2)
  1. SUTENT [Suspect]
     Indication: METASTATIC RENAL CELL CARCINOMA
     Dosage: 50 MG, 4 WEEKS ON
     Route: 048
     Dates: start: 20100301, end: 20101001
  2. DEXAMETHASONE [Concomitant]
     Indication: TRAUMATIC SPINAL CORD COMPRESSION
     Dosage: 2 MG, 1X/DAY
     Route: 048

REACTIONS (4)
  - DRUG TOXICITY [None]
  - PHARYNGEAL INFLAMMATION [None]
  - PHOTOSENSITIVITY REACTION [None]
  - STOMATITIS [None]
